FAERS Safety Report 6312693-2 (Version None)
Quarter: 2009Q3

REPORT INFORMATION
  Report Type: 
  Country: None (occurrence: None)
  Receive Date: 20090814
  Receipt Date: 20090814
  Transmission Date: 20100115
  Serious: Yes (Other)
  Sender: FDA-Public Use
  Company Number: None

PATIENT
  Age: 61 Year
  Sex: Male
  Weight: 86.1834 kg

DRUGS (1)
  1. VISINE-A [Suspect]
     Indication: EYE PRURITUS
     Dosage: ONE DROP USED ONCE ONCE OPHTHALMIC
     Route: 047
     Dates: start: 20090813, end: 20090813

REACTIONS (3)
  - HEADACHE [None]
  - MYDRIASIS [None]
  - VISION BLURRED [None]
